FAERS Safety Report 9718874 (Version 1)
Quarter: 2013Q4

REPORT INFORMATION
  Report Type: Spontaneous
  Country: CZ (occurrence: CZ)
  Receive Date: 20131127
  Receipt Date: 20131127
  Transmission Date: 20140711
  Serious: Yes (Other)
  Sender: FDA-Public Use
  Company Number: CZ-BAXTER-2013BAX046582

PATIENT
  Sex: Female

DRUGS (1)
  1. KIOVIG 100 MG/ML INFUZN? ROZTOK [Suspect]
     Indication: CONGENITAL APLASTIC ANAEMIA
     Route: 042

REACTIONS (1)
  - Drug ineffective [Not Recovered/Not Resolved]
